FAERS Safety Report 7518453 (Version 3)
Quarter: 2013Q3

REPORT INFORMATION
  Report Type: Spontaneous
  Country: AU (occurrence: AU)
  Receive Date: 20100802
  Receipt Date: 20130719
  Transmission Date: 20140515
  Serious: Yes (Other)
  Sender: FDA-Public Use
  Company Number: AU-ROCHE-717069

PATIENT
  Age: 49 Year
  Sex: Female
  Weight: 67 kg

DRUGS (5)
  1. ACTEMRA [Suspect]
     Indication: RHEUMATOID ARTHRITIS
     Dosage: FORM: INFUSION
     Route: 042
  2. ACTEMRA [Suspect]
     Dosage: DOSE REDUCED
     Route: 042
  3. ACTEMRA [Suspect]
     Route: 042
     Dates: start: 20100529, end: 20100724
  4. HYDROCORTISONE [Concomitant]
     Route: 042
  5. PHENERGAN [Concomitant]
     Route: 042

REACTIONS (8)
  - Migraine [Unknown]
  - Anaphylactic reaction [Recovered/Resolved]
  - Dyspnoea [Recovered/Resolved]
  - Feeling abnormal [Recovered/Resolved]
  - Erythema [Recovered/Resolved]
  - Peripheral coldness [Recovered/Resolved]
  - Blood pressure decreased [Recovered/Resolved]
  - Hypersensitivity [Unknown]
